FAERS Safety Report 9853811 (Version 1)
Quarter: 2014Q1

REPORT INFORMATION
  Report Type: Spontaneous
  Country: US (occurrence: US)
  Receive Date: 20140129
  Receipt Date: 20140129
  Transmission Date: 20141002
  Serious: No
  Sender: FDA-Public Use
  Company Number: US-GLAXOSMITHKLINE-A1044720A

PATIENT
  Age: 52 Year
  Sex: Female

DRUGS (2)
  1. BUPROPION HYDROCHLORIDE [Suspect]
     Indication: FATIGUE
     Dosage: 100MG TWICE PER DAY
     Route: 048
     Dates: start: 201301, end: 201302
  2. OTHER MEDICATIONS [Concomitant]

REACTIONS (1)
  - Drug ineffective [Recovered/Resolved]
